FAERS Safety Report 16931513 (Version 2)
Quarter: 2020Q1

REPORT INFORMATION
  Report Type: Report from Study
  Country: BR (occurrence: BR)
  Receive Date: 20191017
  Receipt Date: 20200208
  Transmission Date: 20200409
  Serious: Yes (Other)
  Sender: FDA-Public Use
  Company Number: NVSC2019BR006514

PATIENT
  Sex: Female
  Weight: 68 kg

DRUGS (2)
  1. GILENYA [Suspect]
     Active Substance: FINGOLIMOD HYDROCHLORIDE
     Indication: MULTIPLE SCLEROSIS
     Route: 065
  2. INTERFERON BETA-1B [Suspect]
     Active Substance: INTERFERON BETA-1B
     Indication: PRODUCT USED FOR UNKNOWN INDICATION
     Dosage: 22 MCG (3 TIMES PER WEEK)
     Route: 058
     Dates: start: 2009, end: 2016

REACTIONS (5)
  - Malaise [Unknown]
  - Multiple sclerosis relapse [Unknown]
  - Concomitant disease aggravated [Unknown]
  - Intervertebral disc protrusion [Unknown]
  - Memory impairment [Not Recovered/Not Resolved]

NARRATIVE: CASE EVENT DATE: 2019
